FAERS Safety Report 9406202 (Version 1)
Quarter: 2013Q3

REPORT INFORMATION
  Report Type: Spontaneous
  Country: US (occurrence: US)
  Receive Date: 20130717
  Receipt Date: 20130717
  Transmission Date: 20140515
  Serious: No
  Sender: FDA-Public Use
  Company Number: US-009507513-1307USA008661

PATIENT
  Sex: Female

DRUGS (4)
  1. PEG-INTRON [Suspect]
     Indication: HEPATITIS C
     Dosage: REDIPEN, UNK
     Dates: start: 20130107
  2. RIBAPAK [Suspect]
     Indication: HEPATITIS C
     Dosage: UNK
     Dates: start: 20130107, end: 2013
  3. RIBAPAK [Suspect]
     Dosage: UNK
     Dates: start: 2013
  4. TELAPREVIR [Suspect]
     Indication: HEPATITIS C
     Dosage: UNK
     Dates: start: 20130107, end: 20130331

REACTIONS (3)
  - Muscle atrophy [Unknown]
  - Red blood cell count decreased [Unknown]
  - Asthenia [Unknown]
